FAERS Safety Report 9418848 (Version 4)
Quarter: 2013Q3

REPORT INFORMATION
  Report Type: Spontaneous
  Country: SE (occurrence: SE)
  Receive Date: 20130725
  Receipt Date: 20130903
  Transmission Date: 20140515
  Serious: Yes (Hospitalization, Other)
  Sender: FDA-Public Use
  Company Number: SE-JNJFOC-20130709318

PATIENT
  Age: 35 Year
  Sex: Female

DRUGS (2)
  1. CONCERTA [Suspect]
     Indication: PRODUCT USED FOR UNKNOWN INDICATION
     Route: 048
     Dates: start: 20120607
  2. MAGNESIUM [Concomitant]
     Route: 065

REACTIONS (13)
  - Hypertension [Recovering/Resolving]
  - Dyspnoea [Recovering/Resolving]
  - Muscle spasms [Recovering/Resolving]
  - Dizziness [Recovering/Resolving]
  - Hot flush [Recovering/Resolving]
  - Palpitations [Recovering/Resolving]
  - Hypoaesthesia [Recovering/Resolving]
  - Paraesthesia [Recovering/Resolving]
  - Depression [Unknown]
  - Insomnia [Unknown]
  - Fatigue [Unknown]
  - Stress [Unknown]
  - Panic disorder [Unknown]
